FAERS Safety Report 5501011-5 (Version None)
Quarter: 2007Q4

REPORT INFORMATION
  Report Type: 
  Country: None (occurrence: None)
  Receive Date: 20071029
  Receipt Date: 20071017
  Transmission Date: 20080405
  Serious: Yes (Hospitalization)
  Sender: FDA-Public Use
  Company Number: US-GENENTECH-225032

PATIENT
  Sex: Male
  Weight: 175 kg

DRUGS (7)
  1. AVASTIN [Suspect]
     Indication: METASTATIC NEOPLASM
     Dosage: 590 MG, UNK
     Route: 042
     Dates: start: 20050718, end: 20050802
  2. ARANESP [Suspect]
     Indication: ANAEMIA
     Dosage: 200 A?G, PRN
     Route: 058
  3. OXALIPLATIN [Suspect]
     Indication: METASTATIC NEOPLASM
     Dosage: 160 MG, UNK
     Route: 042
     Dates: start: 20050718, end: 20050802
  4. LEUCOVORIN [Suspect]
     Indication: METASTATIC NEOPLASM
     Dosage: 380 MG, UNK
     Route: 042
     Dates: start: 20050718, end: 20050803
  5. FLUOROURACIL [Suspect]
     Indication: METASTATIC NEOPLASM
     Dosage: 1140 MG, UNK
     Route: 042
     Dates: start: 20050718, end: 20050720
  6. FLUOROURACIL [Suspect]
     Dosage: 760 MG, UNK
     Route: 042
     Dates: start: 20050802, end: 20050803
  7. FLUOROURACIL [Suspect]
     Dosage: 1140 MG, UNK
     Route: 042
     Dates: start: 20050802, end: 20050804

REACTIONS (2)
  - DISEASE PROGRESSION [None]
  - HEPATIC FAILURE [None]
